FAERS Safety Report 21683862 (Version 1)
Quarter: 2022Q4

REPORT INFORMATION
  Report Type: Spontaneous
  Country: US (occurrence: None)
  Receive Date: 20221202
  Receipt Date: 20221202
  Transmission Date: 20230113
  Serious: No
  Sender: FDA-Public Use
  Company Number: None

PATIENT
  Sex: Male

DRUGS (2)
  1. TACROLIMUS [Suspect]
     Active Substance: TACROLIMUS
     Indication: Liver transplant
     Dosage: 3MG BID ORAL?
     Route: 048
  2. ENVARSUS XR [Suspect]
     Active Substance: TACROLIMUS

REACTIONS (2)
  - Asthenia [None]
  - Fatigue [None]
